FAERS Safety Report 10664712 (Version 1)
Quarter: 2014Q4

REPORT INFORMATION
  Report Type: Spontaneous
  Country: TN (occurrence: TN)
  Receive Date: 20141219
  Receipt Date: 20141219
  Transmission Date: 20150529
  Serious: Yes (Other)
  Sender: FDA-Public Use
  Company Number: TN-ASTRAZENECA-2014SE95241

PATIENT
  Age: 45 Day
  Sex: Male
  Weight: 3.6 kg

DRUGS (1)
  1. LIDOCAINE. [Suspect]
     Active Substance: LIDOCAINE
     Indication: NERVE BLOCK
     Route: 053

REACTIONS (1)
  - Neurotoxicity [Recovered/Resolved]
